FAERS Safety Report 10079041 (Version 2)
Quarter: 2014Q2

REPORT INFORMATION
  Report Type: Spontaneous
  Country: US (occurrence: DE)
  Receive Date: 20140415
  Receipt Date: 20140508
  Transmission Date: 20141212
  Serious: Yes (Hospitalization, Other)
  Sender: FDA-Public Use
  Company Number: 2014SP002110

PATIENT
  Age: 3 Year
  Sex: Male
  Weight: 13.2 kg

DRUGS (7)
  1. METHOTREXATE [Suspect]
     Indication: PRODUCT USED FOR UNKNOWN INDICATION
     Dates: start: 20120725
  2. ETANERCEPT [Suspect]
     Indication: PRODUCT USED FOR UNKNOWN INDICATION
     Dates: start: 20120918, end: 20130217
  3. TOCILIZUMAB [Concomitant]
     Route: 058
     Dates: start: 20130417, end: 20130716
  4. CANAKINUMAB [Concomitant]
     Route: 058
     Dates: start: 20130807
  5. PREDNISOLONE [Concomitant]
     Indication: JUVENILE IDIOPATHIC ARTHRITIS
     Route: 048
     Dates: start: 20130416, end: 20140121
  6. FOLIC ACID [Concomitant]
     Indication: JUVENILE IDIOPATHIC ARTHRITIS
     Route: 048
     Dates: start: 20130410
  7. INDOMETACIN [Concomitant]
     Indication: JUVENILE IDIOPATHIC ARTHRITIS
     Route: 048
     Dates: start: 20140122

REACTIONS (6)
  - Otitis media [Recovered/Resolved]
  - Tonsillitis [Recovered/Resolved]
  - Polyp [Recovered/Resolved]
  - Tonsillar disorder [Recovered/Resolved]
  - Fracture [Unknown]
  - Infection [Recovered/Resolved]
